FAERS Safety Report 4784544-9 (Version None)
Quarter: 2005Q3

REPORT INFORMATION
  Report Type: 
  Country: None (occurrence: None)
  Receive Date: 20050930
  Receipt Date: 20050921
  Transmission Date: 20060218
  Serious: Yes (Hospitalization, Other)
  Sender: FDA-Public Use
  Company Number: US-JNJFOC-20050905470

PATIENT
  Sex: Female
  Weight: 126.55 kg

DRUGS (5)
  1. DURAGESIC-100 [Suspect]
     Route: 062
     Dates: start: 20030101
  2. DICYCLOMINE [Concomitant]
     Indication: GASTROINTESTINAL DISORDER
     Route: 048
     Dates: start: 19830101
  3. SPIRONALACTONE [Concomitant]
     Dates: start: 20030101
  4. ESCITALOPRAM OXALATE [Concomitant]
     Indication: DEPRESSION
  5. AMARYL [Concomitant]

REACTIONS (7)
  - DEPRESSION [None]
  - DIABETES MELLITUS [None]
  - DIZZINESS [None]
  - FUNGAL INFECTION [None]
  - NAUSEA [None]
  - OEDEMA PERIPHERAL [None]
  - WHITE BLOOD CELL COUNT DECREASED [None]
